FAERS Safety Report 8573345-1 (Version None)
Quarter: 2012Q3

REPORT INFORMATION
  Report Type: 
  Country: None (occurrence: None)
  Receive Date: 20120806
  Receipt Date: 20120727
  Transmission Date: 20120928
  Serious: Yes (Hospitalization, Other)
  Sender: FDA-Public Use
  Company Number: JP-VERTEX PHARMACEUTICALS INC.-AE-2012-009099

PATIENT
  Age: 70 Year
  Sex: Male

DRUGS (13)
  1. REBETOL [Concomitant]
     Indication: HEPATITIS C
     Route: 048
     Dates: start: 20120417, end: 20120510
  2. RABEPRAZOLE SODIUM [Concomitant]
     Route: 048
  3. FEROTYM [Concomitant]
     Route: 048
  4. TELAVIC (TELAPREVIR) [Suspect]
     Route: 048
     Dates: start: 20120622, end: 20120706
  5. PEGINTERFERON ALFA-2B [Concomitant]
     Indication: HEPATITIS C
     Route: 058
     Dates: start: 20120417, end: 20120629
  6. NORVASC [Concomitant]
     Route: 048
  7. CLARITIN REDITABS [Concomitant]
     Route: 048
  8. TELAVIC (TELAPREVIR) [Suspect]
     Route: 048
     Dates: start: 20120525, end: 20120615
  9. TELAVIC (TELAPREVIR) [Suspect]
     Indication: HEPATITIS C
     Route: 048
     Dates: start: 20120417, end: 20120524
  10. REBETOL [Concomitant]
     Route: 048
     Dates: start: 20120511, end: 20120706
  11. TAMSULOSIN HYDROCHLORIDE [Concomitant]
     Route: 048
  12. LIVALO [Concomitant]
     Route: 048
  13. EPADEL S [Concomitant]
     Route: 048

REACTIONS (4)
  - STEVENS-JOHNSON SYNDROME [None]
  - DRUG ERUPTION [None]
  - PLATELET COUNT DECREASED [None]
  - ANAEMIA [None]
